FAERS Safety Report 5122798-X (Version None)
Quarter: 2006Q4

REPORT INFORMATION
  Report Type: 
  Country: None (occurrence: None)
  Receive Date: 20061004
  Receipt Date: 20060919
  Transmission Date: 20070319
  Serious: Yes (Other)
  Sender: FDA-Public Use
  Company Number: 2006RR-03766

PATIENT
  Sex: 0

DRUGS (2)
  1. METFORMIN (METFORMIN HYDROCHLORIDE) UNKNOWN [Suspect]
     Dosage: ORAL
     Route: 048
  2. AVANDAMET [Suspect]
     Dosage: ORAL
     Route: 048

REACTIONS (1)
  - ANAEMIA [None]
